FAERS Safety Report 19436529 (Version 5)
Quarter: 2021Q3

REPORT INFORMATION
  Report Type: Spontaneous
  Country: GB (occurrence: GB)
  Receive Date: 20210618
  Receipt Date: 20210813
  Transmission Date: 20211014
  Serious: Yes (Death, Other)
  Sender: FDA-Public Use
  Company Number: GB-SA-2021SA199701

PATIENT
  Age: 55 Year
  Sex: Female

DRUGS (42)
  1. PERTUZUMAB. [Suspect]
     Active Substance: PERTUZUMAB
     Dosage: 420 MG, Q3W
     Route: 042
     Dates: start: 20170614, end: 20190327
  2. CALCICHEW D3 FORTE [Concomitant]
     Active Substance: CALCIUM\CHOLECALCIFEROL
     Dosage: UNK, Q8H
     Route: 048
     Dates: start: 20170525
  3. CHLORHEXIDINE GLUCONATE. [Concomitant]
     Active Substance: CHLORHEXIDINE GLUCONATE
     Dosage: 10 ML, Q6H
     Route: 061
     Dates: start: 20170525
  4. LANSOPRAZOLE. [Concomitant]
     Active Substance: LANSOPRAZOLE
     Dosage: 30 MG, QD
     Route: 048
     Dates: start: 20190730
  5. TRANEXAMIC ACID. [Concomitant]
     Active Substance: TRANEXAMIC ACID
     Dosage: UNK
     Route: 065
     Dates: start: 20190722
  6. VANCOMYCIN [Concomitant]
     Active Substance: VANCOMYCIN
     Dosage: 125 MG, QID
     Route: 048
     Dates: start: 20201030
  7. TRASTUZUMAB EMTANSINE [Suspect]
     Active Substance: ADO-TRASTUZUMAB EMTANSINE
     Dosage: 200 MG, Q3W
     Route: 042
     Dates: start: 20190627
  8. PERTUZUMAB. [Suspect]
     Active Substance: PERTUZUMAB
     Indication: BREAST CANCER
     Dosage: 840 MG, 1X
     Route: 042
     Dates: start: 20170524, end: 20170524
  9. AMITRIPTYLINE HYDROCHLORIDE. [Concomitant]
     Active Substance: AMITRIPTYLINE HYDROCHLORIDE
     Indication: DEPRESSED MOOD
     Dosage: 5 MG, QD
     Route: 048
     Dates: start: 20190827
  10. CHLORHEXIDINE GLUCONATE. [Concomitant]
     Active Substance: CHLORHEXIDINE GLUCONATE
     Dosage: 10 ML, QID
     Route: 061
     Dates: start: 20170525
  11. PARACETAMOL [Concomitant]
     Active Substance: ACETAMINOPHEN
     Dosage: 1 IU
     Route: 048
     Dates: start: 20170525
  12. CARMELLOSE SODIUM [Concomitant]
     Active Substance: CARBOXYMETHYLCELLULOSE SODIUM
     Dosage: UNK, Q6H
     Route: 060
     Dates: start: 20170526
  13. TINZAPARIN [Concomitant]
     Active Substance: TINZAPARIN
     Dosage: 4500 IU, QD
     Route: 058
     Dates: start: 20190918
  14. PACLITAXEL. [Suspect]
     Active Substance: PACLITAXEL
     Indication: BREAST CANCER
     Dosage: 450 MG, Q3W
     Route: 042
     Dates: start: 20170614, end: 20170614
  15. CALCICHEW D3 FORTE [Concomitant]
     Active Substance: CALCIUM\CHOLECALCIFEROL
     Route: 048
     Dates: start: 20170525
  16. METRONIDAZOLE. [Concomitant]
     Active Substance: METRONIDAZOLE
     Dosage: UNK
     Route: 065
     Dates: start: 20200909, end: 20200914
  17. TRASTUZUMAB. [Suspect]
     Active Substance: TRASTUZUMAB
     Dosage: 378 MG, Q3W
     Route: 042
     Dates: start: 20180516, end: 20190327
  18. PACLITAXEL. [Suspect]
     Active Substance: PACLITAXEL
     Dosage: 375 MG, Q3W
     Route: 042
     Dates: start: 20170705, end: 20170726
  19. AMOXICILLIN. [Concomitant]
     Active Substance: AMOXICILLIN
     Indication: PYREXIA
  20. CETIRIZINE [Concomitant]
     Active Substance: CETIRIZINE HYDROCHLORIDE
     Dosage: 10 MG, QD
     Route: 048
     Dates: start: 20190313
  21. LOPERAMIDE [Concomitant]
     Active Substance: LOPERAMIDE
     Dosage: 2 MG, PRN
     Route: 048
     Dates: start: 20170613
  22. TRASTUZUMAB. [Suspect]
     Active Substance: TRASTUZUMAB
     Indication: BREAST CANCER
     Dosage: 525 MG LOADING DOSE
     Route: 042
     Dates: start: 20170524, end: 20170524
  23. PACLITAXEL. [Suspect]
     Active Substance: PACLITAXEL
     Dosage: 300 MG, Q3W
     Route: 042
     Dates: start: 20170816, end: 20170906
  24. METRONIDAZOLE. [Concomitant]
     Active Substance: METRONIDAZOLE
     Dosage: 400 MG, QM
     Route: 048
     Dates: start: 20201116, end: 202011
  25. CAPECITABINE. [Suspect]
     Active Substance: CAPECITABINE
     Indication: BREAST CANCER
     Dosage: 1300 MG
     Route: 048
     Dates: start: 20201020
  26. TRASTUZUMAB EMTANSINE [Suspect]
     Active Substance: ADO-TRASTUZUMAB EMTANSINE
     Indication: BREAST CANCER
     Dosage: 240 MG, Q3W
     Route: 042
     Dates: start: 20190427, end: 20190606
  27. TRASTUZUMAB EMTANSINE [Suspect]
     Active Substance: ADO-TRASTUZUMAB EMTANSINE
     Dosage: 160 MG, Q3W
     Route: 042
     Dates: start: 20190829, end: 20200326
  28. CALCICHEW D3 FORTE [Concomitant]
     Active Substance: CALCIUM\CHOLECALCIFEROL
     Route: 048
     Dates: start: 20170525
  29. DOMPERIDONE [Concomitant]
     Active Substance: DOMPERIDONE
     Dosage: 10 MG, TID
     Route: 048
     Dates: start: 20170523
  30. FUSIDIC ACID [Concomitant]
     Active Substance: FUSIDIC ACID
     Dosage: UNK
     Route: 065
     Dates: start: 201905
  31. IKERVIS [Concomitant]
     Active Substance: CYCLOSPORINE
     Dosage: UNK
     Route: 047
     Dates: start: 201708
  32. APIXABAN [Concomitant]
     Active Substance: APIXABAN
     Dosage: 2.5 MG, BID
     Route: 048
     Dates: start: 20190819, end: 20190917
  33. CLOBETASOL PROPIONATE. [Concomitant]
     Active Substance: CLOBETASOL PROPIONATE
     Dosage: UNK, BID
     Route: 061
     Dates: start: 20170210
  34. TINZAPARIN [Concomitant]
     Active Substance: TINZAPARIN
     Dosage: 12000 IU, QD
     Route: 058
     Dates: start: 20170713
  35. VANCOMYCIN [Concomitant]
     Active Substance: VANCOMYCIN
     Dosage: 500 MG, QID
     Route: 048
     Dates: start: 20201104, end: 20201113
  36. ZOLEDRONIC ACID [Concomitant]
     Active Substance: ZOLEDRONIC ACID
     Dosage: 4 MILLIGRAM, EVERY3?4 WEEKS
     Route: 042
     Dates: start: 20170525
  37. DOCETAXEL. [Suspect]
     Active Substance: DOCETAXEL
     Indication: BREAST CANCER
     Dosage: 130 MG, Q3W
     Route: 042
     Dates: start: 20170525, end: 20170525
  38. TRASTUZUMAB. [Suspect]
     Active Substance: TRASTUZUMAB
     Dosage: 400 MG, Q3W
     Route: 042
     Dates: start: 20170614, end: 20180425
  39. AMOXICILLIN. [Concomitant]
     Active Substance: AMOXICILLIN
     Indication: ABDOMINAL PAIN
     Dosage: 625 MG, TID
     Route: 048
     Dates: start: 20201211, end: 20201216
  40. CALCICHEW D3 FORTE [Concomitant]
     Active Substance: CALCIUM\CHOLECALCIFEROL
     Dosage: UNK, TID
     Route: 048
     Dates: start: 20170525
  41. CHLORPHENAMINE [Concomitant]
     Active Substance: CHLORPHENIRAMINE MALEATE
     Dosage: 4 MG, QID
     Route: 048
     Dates: start: 20170526
  42. SANDO K [POTASSIUM BICARBONATE;POTASSIUM CHLORIDE] [Concomitant]
     Active Substance: POTASSIUM BICARBONATE\POTASSIUM CHLORIDE
     Dosage: UNK, BID
     Dates: start: 20170525

REACTIONS (6)
  - Disease progression [Fatal]
  - Device related infection [Not Recovered/Not Resolved]
  - Neoplasm progression [Fatal]
  - Tenosynovitis [Recovered/Resolved]
  - Biliary sepsis [Recovered/Resolved]
  - Off label use [Unknown]

NARRATIVE: CASE EVENT DATE: 20190604
